FAERS Safety Report 6566346-6 (Version None)
Quarter: 2010Q1

REPORT INFORMATION
  Report Type: 
  Country: None (occurrence: None)
  Receive Date: 20100202
  Receipt Date: 20100125
  Transmission Date: 20100710
  Serious: Yes (Hospitalization)
  Sender: FDA-Public Use
  Company Number: FR-ASTRAZENECA-2010SE03916

PATIENT
  Age: 30913 Day
  Sex: Male

DRUGS (3)
  1. MERONEM [Suspect]
     Indication: LUNG DISORDER
     Route: 042
     Dates: start: 20090821, end: 20090825
  2. COLIMYCINE [Suspect]
     Indication: LUNG DISORDER
     Route: 042
     Dates: start: 20090821, end: 20090825
  3. ZYVOXID [Suspect]
     Indication: LUNG DISORDER
     Route: 042
     Dates: start: 20090821, end: 20090825

REACTIONS (3)
  - PATHOGEN RESISTANCE [None]
  - RASH MACULO-PAPULAR [None]
  - SKIN REACTION [None]
